FAERS Safety Report 19160779 (Version 7)
Quarter: 2022Q1

REPORT INFORMATION
  Report Type: Spontaneous
  Country: FR (occurrence: FR)
  Receive Date: 20210421
  Receipt Date: 20220217
  Transmission Date: 20220423
  Serious: Yes (Hospitalization, Other)
  Sender: FDA-Public Use
  Company Number: FR-002147023-NVSC2020FR327049

PATIENT
  Age: 52 Year
  Sex: Female
  Weight: 61 kg

DRUGS (62)
  1. CYPROTERONE [Suspect]
     Active Substance: CYPROTERONE
     Indication: Hyperandrogenism
     Dosage: UNK UNK, UNKNOWN
     Route: 065
     Dates: start: 20090615
  2. CYPROTERONE [Suspect]
     Active Substance: CYPROTERONE
     Dosage: 50 MG, UNKNOWN
     Route: 065
     Dates: start: 20110404
  3. CYPROTERONE [Suspect]
     Active Substance: CYPROTERONE
     Dosage: 50 MG, UNKNOWN
     Route: 065
  4. CYPROTERONE [Suspect]
     Active Substance: CYPROTERONE
     Dosage: 50 MG, UNKNOWN
     Route: 065
     Dates: start: 20110606
  5. ESTRADIOL [Suspect]
     Active Substance: ESTRADIOL
     Indication: Product used for unknown indication
     Dosage: 1 DOSAGE FORMS DAILY; THERAPY END DATE :ASKU
     Route: 065
     Dates: start: 19990505
  6. DESOGESTREL\ETHINYL ESTRADIOL [Suspect]
     Active Substance: DESOGESTREL\ETHINYL ESTRADIOL
     Indication: Hyperandrogenism
     Dosage: UNK (7 DAYS PER MONTH)
     Route: 065
     Dates: start: 2000, end: 2004
  7. DESOGESTREL\ETHINYL ESTRADIOL [Suspect]
     Active Substance: DESOGESTREL\ETHINYL ESTRADIOL
     Dosage: 1 BOX OF 3 BLISTER PACKS. TO REPEAT 4 TIMES
     Route: 065
     Dates: start: 20020227
  8. DESOGESTREL\ETHINYL ESTRADIOL [Suspect]
     Active Substance: DESOGESTREL\ETHINYL ESTRADIOL
     Dosage: 1 BOX OF 3 BLISTER PACKS
     Route: 065
     Dates: start: 20021030
  9. DESOGESTREL\ETHINYL ESTRADIOL [Suspect]
     Active Substance: DESOGESTREL\ETHINYL ESTRADIOL
     Dosage: 1 BOX OF 3 BLISTER PACKS, TO REPEAT 6 TIMES
     Route: 065
     Dates: start: 20030611
  10. DESOGESTREL\ETHINYL ESTRADIOL [Suspect]
     Active Substance: DESOGESTREL\ETHINYL ESTRADIOL
     Dosage: 1 BOX OF 3 BLISTER PACKS. TO REPEAT 3 MONTHS
     Route: 065
     Dates: start: 20000711
  11. DESOGESTREL\ETHINYL ESTRADIOL [Suspect]
     Active Substance: DESOGESTREL\ETHINYL ESTRADIOL
     Dosage: CYCLEANE 30, 1 BOX OF 3 BLISTER PACKS. TO REPEAT 4 TIMES
     Route: 065
     Dates: start: 20010822
  12. DESOGESTREL\ETHINYL ESTRADIOL [Suspect]
     Active Substance: DESOGESTREL\ETHINYL ESTRADIOL
     Dosage: 1 BOX OF 3 BLISTER PACKS. TO REPEAT 6 TIMES
     Route: 065
     Dates: start: 20040107
  13. MIRENA [Suspect]
     Active Substance: LEVONORGESTREL
     Indication: Hyperandrogenism
     Route: 015
     Dates: start: 20040901, end: 20050913
  14. MIRENA [Suspect]
     Active Substance: LEVONORGESTREL
     Route: 015
     Dates: start: 20040707
  15. ETHINYL ESTRADIOL\LEVONORGESTREL [Suspect]
     Active Substance: ETHINYL ESTRADIOL\LEVONORGESTREL
     Indication: Product used for unknown indication
     Route: 065
  16. ETHINYL ESTRADIOL\LEVONORGESTREL [Suspect]
     Active Substance: ETHINYL ESTRADIOL\LEVONORGESTREL
     Dosage: 1 BOX OF 3 BLISTER PACKS
     Route: 065
     Dates: start: 19980617, end: 19990213
  17. CYPROTERONE ACETATE [Suspect]
     Active Substance: CYPROTERONE ACETATE
     Indication: Hyperandrogenism
     Dosage: 0.5 DF, 20 DAYS PER MONTH
     Route: 065
     Dates: start: 20120828, end: 20130826
  18. CYPROTERONE ACETATE [Suspect]
     Active Substance: CYPROTERONE ACETATE
     Dosage: 0.5 DF, 20 DAYS PER MONTH
     Route: 065
     Dates: end: 201506
  19. CYPROTERONE ACETATE [Suspect]
     Active Substance: CYPROTERONE ACETATE
     Dosage: 0.5 DF, SEVEN DAYS PER MONTH
     Route: 065
     Dates: start: 200507, end: 201108
  20. CYPROTERONE ACETATE [Suspect]
     Active Substance: CYPROTERONE ACETATE
     Dosage: 0.5 DF (50 MG), 7 DAYS PER MONTH
     Route: 065
     Dates: start: 199806, end: 1999
  21. CYPROTERONE ACETATE [Suspect]
     Active Substance: CYPROTERONE ACETATE
     Dosage: UNK (7 DAYS PER MONTH)
     Route: 065
     Dates: start: 2000, end: 2004
  22. CYPROTERONE ACETATE [Suspect]
     Active Substance: CYPROTERONE ACETATE
     Dosage: 1 DOSAGE FORMS DAILY;
     Route: 065
     Dates: start: 19990723
  23. CYPROTERONE ACETATE [Suspect]
     Active Substance: CYPROTERONE ACETATE
     Dosage: 1 DOSAGE FORMS DAILY; FOR 6 FIRST DAYS OF A CYCLE + INTRAUTERINE DEVICE. 1 BOX. TO REPEAT
     Route: 065
     Dates: start: 19990213
  24. CYPROTERONE ACETATE [Suspect]
     Active Substance: CYPROTERONE ACETATE
     Dosage: 1 DOSAGE FORMS DAILY; QD FOR 7 FIRST DAYS OF CYCLEANE
     Route: 065
     Dates: start: 20030611
  25. CYPROTERONE ACETATE [Suspect]
     Active Substance: CYPROTERONE ACETATE
     Dosage: 1 BOX TO REPEAT 6 TIMES
     Route: 065
     Dates: start: 20020227
  26. CYPROTERONE ACETATE [Suspect]
     Active Substance: CYPROTERONE ACETATE
     Dosage: 1 DOSAGE FORMS DAILY; QD FOR 7 FIRST DAYS OF CYCLEANE
     Route: 065
     Dates: start: 20030611
  27. CYPROTERONE ACETATE [Suspect]
     Active Substance: CYPROTERONE ACETATE
     Dosage: .5 DOSAGE FORMS DAILY; QD FOR 20 DAYS
     Route: 065
     Dates: start: 20020227
  28. CYPROTERONE ACETATE [Suspect]
     Active Substance: CYPROTERONE ACETATE
     Dosage: .5 DOSAGE FORMS DAILY; QD FOR 20 DAYS
     Route: 065
     Dates: start: 20050713
  29. CYPROTERONE ACETATE [Suspect]
     Active Substance: CYPROTERONE ACETATE
     Dosage: .5 DOSAGE FORMS DAILY;
     Route: 065
     Dates: start: 20060808
  30. CYPROTERONE ACETATE [Suspect]
     Active Substance: CYPROTERONE ACETATE
     Dosage: 1 DOSAGE FORMS DAILY; QD FOR 7 FIRST DAYS OF CYCLEANE
     Route: 065
     Dates: start: 20090901
  31. CYPROTERONE ACETATE [Suspect]
     Active Substance: CYPROTERONE ACETATE
     Dosage: 1 DOSAGE FORMS DAILY; QD FOR 7 FIRST DAYS
     Route: 065
     Dates: start: 20040107
  32. CYPROTERONE ACETATE [Suspect]
     Active Substance: CYPROTERONE ACETATE
     Dosage: .5 DOSAGE FORMS DAILY;
     Route: 065
     Dates: start: 20010822
  33. CYPROTERONE ACETATE [Suspect]
     Active Substance: CYPROTERONE ACETATE
     Dosage: 1 DOSAGE FORMS DAILY; QD FOR 7 FIRST DAYS OF CYCLEANE
     Route: 065
     Dates: start: 20100816
  34. CYPROTERONE ACETATE [Suspect]
     Active Substance: CYPROTERONE ACETATE
     Dosage: 1 DOSAGE FORMS DAILY; QD FOR 7 FIRST DAYS
     Route: 065
     Dates: start: 20070829
  35. CYPROTERONE ACETATE [Suspect]
     Active Substance: CYPROTERONE ACETATE
     Dosage: .5 DOSAGE FORMS DAILY;
     Route: 065
     Dates: start: 20060628
  36. CYPROTERONE ACETATE [Suspect]
     Active Substance: CYPROTERONE ACETATE
     Dosage: 1 DOSAGE FORMS DAILY;
     Route: 065
     Dates: start: 20021030
  37. ESTRADIOL [Suspect]
     Active Substance: ESTRADIOL
     Indication: Hyperandrogenism
     Dosage: 1 MG (20 DAYS PER MONTHS)
     Route: 065
     Dates: start: 200507, end: 201108
  38. ESTRADIOL [Suspect]
     Active Substance: ESTRADIOL
     Dosage: 1 DOSAGE FORMS DAILY; QD FOR 20 DAYS (SUSPENDED FOR 1 WEEK AND THEN RESUMED SIMILARLY. QUANTITY SUFF
     Dates: start: 20100816
  39. ESTRADIOL [Suspect]
     Active Substance: ESTRADIOL
     Dosage: 1 DOSAGE FORMS DAILY; DF, QD FOR 20 DAYS (1 BOX OF 12. TO RESUME 6 TIMES)
     Dates: start: 20070829
  40. ESTRADIOL [Suspect]
     Active Substance: ESTRADIOL
     Dosage: 1 DOSAGE FORMS DAILY; 1 DF, QD FOR 20 DAYS
     Dates: start: 20050713
  41. ESTRADIOL [Suspect]
     Active Substance: ESTRADIOL
     Dosage: 1 DOSAGE FORMS DAILY; 1 DF, QD FOR 20 DAYS
     Dates: start: 20060808
  42. ESTRADIOL [Suspect]
     Active Substance: ESTRADIOL
     Dosage: 1 DOSAGE FORMS DAILY; 1 DF, QD FOR 20 DAYS
     Dates: start: 20090901
  43. ESTRADIOL [Suspect]
     Active Substance: ESTRADIOL
     Dosage: 1 DOSAGE FORMS DAILY; 1 DF, QD FOR 20 DAYS
     Dates: start: 20060628
  44. MOTILIUM [Concomitant]
     Active Substance: DOMPERIDONE
     Indication: Product used for unknown indication
     Dosage: 3 DOSAGE FORMS DAILY; UNIT DOE:3 DF,1 DF, TID
     Route: 065
  45. MOTILIUM [Concomitant]
     Active Substance: DOMPERIDONE
     Dosage: 1 DOSAGE FORMS DAILY;
     Route: 065
  46. MOTILIUM [Concomitant]
     Active Substance: DOMPERIDONE
     Dosage: 3 DOSAGE FORMS DAILY;
     Route: 065
  47. KETOPROFEN [Concomitant]
     Active Substance: KETOPROFEN
     Indication: Product used for unknown indication
     Dosage: UNK
     Route: 065
  48. ESTRADIOL [Concomitant]
     Active Substance: ESTRADIOL
     Indication: Product used for unknown indication
     Dosage: 1 DOSAGE FORMS DAILY; QD FOR 10 DAYS
     Route: 065
     Dates: start: 19990505
  49. POLYGYNAX [Concomitant]
     Indication: Product used for unknown indication
     Dosage: GYNECOLOGICAL OVULE INTRODUCTION INTO VAGINA IN THE EVENING BEFORE GOING TO BED FOR 6 DAYS
     Route: 065
  50. DUPHASTON [Concomitant]
     Active Substance: DYDROGESTERONE
     Dosage: QD FOR 10 DAYS
     Route: 065
     Dates: start: 19990505
  51. ZOMIG [Concomitant]
     Active Substance: ZOLMITRIPTAN
     Route: 065
     Dates: start: 19990318
  52. ZOMIG [Concomitant]
     Active Substance: ZOLMITRIPTAN
     Dosage: 1 DF (HOUR LATER IF NEEDED)
     Route: 065
     Dates: start: 20060808
  53. ZOMIG [Concomitant]
     Active Substance: ZOLMITRIPTAN
     Dosage: 1 DF FOR MIGRAINE TO REPEAT ONE HOUR LATER IF NEEDED AND 4 TIMES PER 24 HOURS AT MAXIMUM
     Route: 065
     Dates: start: 20021030
  54. ZOMIG [Concomitant]
     Active Substance: ZOLMITRIPTAN
     Dosage: TO REPEAT 1 HOUR LATER IF NEEDED
     Route: 065
     Dates: start: 20090901
  55. ZOMIG [Concomitant]
     Active Substance: ZOLMITRIPTAN
     Dosage: TO REPEAT ONE HOUR LATER IF NEEDED AND 4 TIMES PER 24 HOURS AT MAXIMUM
     Route: 065
     Dates: start: 20020227
  56. ZOMIG [Concomitant]
     Active Substance: ZOLMITRIPTAN
     Dosage: 1 DF FOR MIGRAINE TO REPEAT ONE HOUR LATER IF NEEDED AND 4 TIMES PER 24 HOURS AT MAXIMUM. 1 BOX OF 1
     Route: 065
     Dates: start: 20040107
  57. ZOMIG [Concomitant]
     Active Substance: ZOLMITRIPTAN
     Dosage: 1 DF (FOR MIGRAINE TO REPEAT ONE HOUR LATER IF NEEDED AND 4 TIMES PER 24 HOURS AT MAXIMUM. 1 BOX OF
     Route: 065
     Dates: start: 20030611
  58. ZOMIG [Concomitant]
     Active Substance: ZOLMITRIPTAN
     Dosage: 1 DF (TO REPEAT 1 HOUR LATER IF NEEDED)
     Route: 065
     Dates: start: 20080919
  59. ZOMIG [Concomitant]
     Active Substance: ZOLMITRIPTAN
     Dosage: 1 DF (TO REPEAT 1 HOUR LATER IF NEEDED)
     Route: 065
     Dates: start: 20070829
  60. ZOMIG [Concomitant]
     Active Substance: ZOLMITRIPTAN
     Dosage: 1 DF FOR MIGRAINEN TO REPEAT ONE HOUR LATER IF NEEDED AND 4 TIMES PER 24 HOURS AT MAXIMUM
     Route: 065
     Dates: start: 20010822
  61. ZOMIG [Concomitant]
     Active Substance: ZOLMITRIPTAN
     Route: 065
     Dates: start: 20090213
  62. ZOMIG [Concomitant]
     Active Substance: ZOLMITRIPTAN
     Dosage: 1 DF (TO REPEAT 1 HR LATER IF NEEDED)
     Route: 065
     Dates: start: 20051006

REACTIONS (31)
  - Haemorrhage [Unknown]
  - Meningioma [Unknown]
  - Squamous cell carcinoma [Unknown]
  - Tension headache [Unknown]
  - Epilepsy [Unknown]
  - Facial paralysis [Unknown]
  - Cognitive disorder [Unknown]
  - Tumour haemorrhage [Unknown]
  - Hypothermia [Unknown]
  - Seizure [Unknown]
  - Scar [Unknown]
  - Pain of skin [Unknown]
  - Fatigue [Unknown]
  - Skin depigmentation [Unknown]
  - Skin lesion [Unknown]
  - Post procedural oedema [Unknown]
  - Pain [Unknown]
  - Headache [Unknown]
  - Sleep disorder [Unknown]
  - Haematoma [Unknown]
  - Muscle tightness [Unknown]
  - Migraine [Unknown]
  - Musculoskeletal stiffness [Unknown]
  - Aphasia [Unknown]
  - Nausea [Unknown]
  - Arthralgia [Unknown]
  - Pain in extremity [Unknown]
  - Dysarthria [Unknown]
  - Feeling abnormal [Unknown]
  - Language disorder [Unknown]
  - Psychomotor retardation [Unknown]

NARRATIVE: CASE EVENT DATE: 20140101
